FAERS Safety Report 6026220-0 (Version None)
Quarter: 2008Q4

REPORT INFORMATION
  Report Type: 
  Country: None (occurrence: None)
  Receive Date: 20081230
  Receipt Date: 20081215
  Transmission Date: 20090506
  Serious: Yes (Hospitalization)
  Sender: FDA-Public Use
  Company Number: 2006S1011221

PATIENT
  Sex: Female
  Weight: 53.5 kg

DRUGS (2)
  1. MERCAPTAMINE BITARTRATE (MERCAPTAMINE BITARTRATE) [Suspect]
     Indication: CYSTINOSIS
     Dosage: 40 MG/KG DAILY ORAL; 60 MG/KG DAILY ORAL; 50 MG/KG DAILY ORAL; 20 MG/KG DAILY ORAL
     Route: 048
     Dates: start: 20001201
  2. OMEPRAZOLE [Concomitant]

REACTIONS (4)
  - BREATH ODOUR [None]
  - GASTROINTESTINAL DISORDER [None]
  - SKIN ODOUR ABNORMAL [None]
  - VOMITING [None]
